FAERS Safety Report 5591361-9 (Version None)
Quarter: 2008Q1

REPORT INFORMATION
  Report Type: 
  Country: None (occurrence: None)
  Receive Date: 20080110
  Receipt Date: 20080110
  Transmission Date: 20080703
  Serious: Yes (Life-Threatening, Hospitalization)
  Sender: FDA-Public Use
  Company Number: None

PATIENT
  Age: 7 Year
  Sex: Female
  Weight: 20 kg

DRUGS (2)
  1. KEPPRA [Suspect]
     Indication: MYOCLONIC EPILEPSY
     Dosage: 250MG--}600MG--}750MG BID PO
     Route: 048
     Dates: start: 20061001, end: 20071115
  2. KEPPRA [Suspect]
     Indication: MYOCLONIC EPILEPSY
     Dosage: 750MG  ONE DOSE  IV
     Route: 042
     Dates: start: 20071115

REACTIONS (4)
  - ALTERED STATE OF CONSCIOUSNESS [None]
  - NERVOUS SYSTEM DISORDER [None]
  - PROGRESSIVE BULBAR PALSY [None]
  - RESPIRATORY FAILURE [None]
